FAERS Safety Report 6389522-4 (Version None)
Quarter: 2009Q4

REPORT INFORMATION
  Report Type: 
  Country: None (occurrence: None)
  Receive Date: 20091006
  Receipt Date: 20090928
  Transmission Date: 20100525
  Serious: No
  Sender: FDA-Public Use
  Company Number: US-B.I. PHARMACEUTICALS,INC./RIDGEFIELD-2009-BP-11358BP

PATIENT
  Sex: Female

DRUGS (5)
  1. SPIRIVA [Suspect]
     Indication: CHRONIC OBSTRUCTIVE PULMONARY DISEASE
     Dosage: 18 MCG
     Route: 055
     Dates: start: 20090903, end: 20090914
  2. SPIRIVA [Suspect]
     Dosage: 18 MCG
     Route: 055
     Dates: start: 20080101, end: 20090101
  3. WARFARIN [Concomitant]
     Indication: ATRIAL FIBRILLATION
     Dates: start: 20050101
  4. ATENOLOL [Concomitant]
     Indication: ATRIAL FIBRILLATION
     Dates: start: 20050101
  5. DILTIAZEM [Concomitant]
     Indication: HYPERTENSION
     Dates: start: 20050101

REACTIONS (11)
  - ARTHRALGIA [None]
  - CHEST DISCOMFORT [None]
  - CONSTIPATION [None]
  - COUGH [None]
  - DRY MOUTH [None]
  - DYSPEPSIA [None]
  - INCREASED UPPER AIRWAY SECRETION [None]
  - JOINT STIFFNESS [None]
  - OROPHARYNGEAL PAIN [None]
  - OSTEOPOROSIS [None]
  - PULMONARY CONGESTION [None]
